FAERS Safety Report 8555991-4 (Version None)
Quarter: 2012Q3

REPORT INFORMATION
  Report Type: 
  Country: None (occurrence: None)
  Receive Date: 20120801
  Receipt Date: 20120720
  Transmission Date: 20120928
  Serious: No
  Sender: FDA-Public Use
  Company Number: US-009507513-2012SP016562

PATIENT

DRUGS (5)
  1. PROVENTIL [Suspect]
     Indication: ASTHMA
     Dosage: 2 PUFF
     Dates: start: 20120324
  2. RAMIPRIL [Concomitant]
     Indication: PRODUCT USED FOR UNKNOWN INDICATION
  3. SINGULAIR [Concomitant]
     Indication: PRODUCT USED FOR UNKNOWN INDICATION
  4. SEREVENT [Concomitant]
     Indication: PRODUCT USED FOR UNKNOWN INDICATION
  5. METOPROLOL TARTRATE [Concomitant]
     Indication: PRODUCT USED FOR UNKNOWN INDICATION

REACTIONS (4)
  - ASTHMA [None]
  - HEADACHE [None]
  - RESPIRATORY TRACT CONGESTION [None]
  - DRUG INEFFECTIVE [None]
